FAERS Safety Report 19255548 (Version 5)
Quarter: 2021Q3

REPORT INFORMATION
  Report Type: Report from Study
  Country: US (occurrence: US)
  Receive Date: 20210513
  Receipt Date: 20210921
  Transmission Date: 20211014
  Serious: Yes (Life-Threatening)
  Sender: FDA-Public Use
  Company Number: US-SA-2021SA090484

PATIENT
  Age: 17 Year
  Sex: Male
  Weight: 61.4 kg

DRUGS (30)
  1. VINCRISTINE SULFATE. [Suspect]
     Active Substance: VINCRISTINE SULFATE
     Indication: T-CELL TYPE ACUTE LEUKAEMIA
     Dosage: 1.5 MG/M2, ON DAYS 10, 17, 24 AND 31
     Route: 042
     Dates: start: 20210328, end: 20210328
  2. MONTELUKAST [Concomitant]
     Active Substance: MONTELUKAST SODIUM
     Indication: PROPHYLAXIS
     Dosage: TOTAL DAILY DOSE: 10 MG
     Route: 048
     Dates: start: 20210312, end: 20210312
  3. ACETAMINOPHEN. [Concomitant]
     Active Substance: ACETAMINOPHEN
     Indication: PROPHYLAXIS
     Dosage: UNK
     Route: 048
     Dates: start: 20210309
  4. ACETAMINOPHEN. [Concomitant]
     Active Substance: ACETAMINOPHEN
     Dosage: TOTAL DAILY DOSE: 1000 MG
     Route: 048
     Dates: start: 20210312, end: 20210312
  5. DIPHENHYDRAMINE. [Concomitant]
     Active Substance: DIPHENHYDRAMINE
     Dosage: TOTAL DAILY DOSE: 50 MG
     Route: 048
     Dates: start: 20210326, end: 20210326
  6. ISATUXIMAB [Suspect]
     Active Substance: ISATUXIMAB
     Dosage: 20 MG/KG, QW
     Route: 042
     Dates: start: 20210312, end: 20210312
  7. VINCRISTINE SULFATE. [Suspect]
     Active Substance: VINCRISTINE SULFATE
     Dosage: 1.5 MG/M2, ON DAYS 10, 17, 24 AND 31
     Route: 042
     Dates: start: 20210321, end: 20210321
  8. DEXAMETHASONE. [Concomitant]
     Active Substance: DEXAMETHASONE
     Indication: PROPHYLAXIS
     Dosage: TOTAL DAILY DOSE: 18  MG
     Route: 048
     Dates: start: 20210312, end: 20210312
  9. ASPARAGINASE [Suspect]
     Active Substance: ASPARAGINASE
     Indication: T-CELL TYPE ACUTE LEUKAEMIA
     Dosage: 1000 IU/M2
     Route: 042
     Dates: start: 20210321, end: 20210321
  10. MONTELUKAST [Concomitant]
     Active Substance: MONTELUKAST SODIUM
     Dosage: TOTAL DAILY DOSE: 10 MG
     Route: 048
     Dates: start: 20210326, end: 20210326
  11. FAMOTIDINE. [Concomitant]
     Active Substance: FAMOTIDINE
     Dosage: TOTAL DAILY DOSE: 20 MG
     Route: 048
     Dates: start: 20210312, end: 20210312
  12. DIPHENHYDRAMINE. [Concomitant]
     Active Substance: DIPHENHYDRAMINE
     Dosage: TOTAL DAILY DOSE: 50 MG
     Route: 048
     Dates: start: 20210312, end: 20210312
  13. METHYLPREDNISOLONE. [Concomitant]
     Active Substance: METHYLPREDNISOLONE
     Indication: PROPHYLAXIS
     Dosage: TOTAL DAILY DOSE: 100 MG
     Route: 042
     Dates: start: 20210312, end: 20210312
  14. ISATUXIMAB [Suspect]
     Active Substance: ISATUXIMAB
     Dosage: 20 MG/KG, QW,
     Route: 042
     Dates: start: 20210312, end: 20210312
  15. MITOXANTRONE [Suspect]
     Active Substance: MITOXANTRONE HYDROCHLORIDE
     Indication: T-CELL TYPE ACUTE LEUKAEMIA
     Dosage: 10 MG/M2, ON DAYS 8 AND 9
     Route: 042
     Dates: start: 20210320, end: 20210320
  16. MITOXANTRONE [Suspect]
     Active Substance: MITOXANTRONE HYDROCHLORIDE
     Dosage: 10 MG/M2, ON DAYS 8 AND 9
     Route: 042
     Dates: start: 20210319, end: 20210319
  17. SULFAMETHOXAZOLE;TRIMETHOPRIM [Concomitant]
     Active Substance: SULFAMETHOXAZOLE\TRIMETHOPRIM
     Indication: PROPHYLAXIS
     Dosage: UNK
     Route: 048
     Dates: start: 20210307
  18. DIPHENHYDRAMINE. [Concomitant]
     Active Substance: DIPHENHYDRAMINE
     Indication: PROPHYLAXIS
     Dosage: TOTAL DAILY DOSE: 50 MG
     Route: 048
     Dates: start: 20210319, end: 20210319
  19. ALLOPURINOL. [Concomitant]
     Active Substance: ALLOPURINOL
     Indication: PROPHYLAXIS
     Dosage: UNK
     Route: 048
     Dates: start: 20200309
  20. ONDANSETRON [Concomitant]
     Active Substance: ONDANSETRON
     Indication: PROPHYLAXIS
     Dosage: UNK
     Route: 048
     Dates: start: 20210310
  21. MONTELUKAST [Concomitant]
     Active Substance: MONTELUKAST SODIUM
     Dosage: TOTAL DAILY DOSE: 10 MG
     Route: 048
     Dates: start: 20210319, end: 20210319
  22. FAMOTIDINE. [Concomitant]
     Active Substance: FAMOTIDINE
     Indication: PROPHYLAXIS
     Dosage: TOTAL DAILY DOSE: 20 MG
     Route: 048
     Dates: start: 20210319, end: 20210319
  23. FAMOTIDINE. [Concomitant]
     Active Substance: FAMOTIDINE
     Dosage: TOTAL DAILY DOSE: 20 MG
     Route: 048
     Dates: start: 20210326, end: 20210326
  24. DEXAMETHASONE. [Suspect]
     Active Substance: DEXAMETHASONE
     Dosage: 10 MG/M2, DAYS ?3 TO ?1 (CYCLE 1 ONLY), 1, 8
     Route: 048
     Dates: start: 20210309, end: 20210309
  25. ACETAMINOPHEN. [Concomitant]
     Active Substance: ACETAMINOPHEN
     Dosage: TOTAL DAILY DOSE: 1000 MG
     Route: 048
     Dates: start: 20210319, end: 20210319
  26. ACETAMINOPHEN. [Concomitant]
     Active Substance: ACETAMINOPHEN
     Dosage: TOTAL DAILY DOSE: 1000 MG
     Route: 048
     Dates: start: 20210326, end: 20210326
  27. CHOLECALCIFEROL [Concomitant]
     Active Substance: CHOLECALCIFEROL
     Dosage: UNK
     Route: 048
     Dates: start: 20191104
  28. ISATUXIMAB [Suspect]
     Active Substance: ISATUXIMAB
     Indication: T-CELL TYPE ACUTE LEUKAEMIA
     Dosage: 20 MG/KG, QW
     Route: 042
     Dates: start: 20210326, end: 20210326
  29. DEXAMETHASONE. [Suspect]
     Active Substance: DEXAMETHASONE
     Indication: T-CELL TYPE ACUTE LEUKAEMIA
     Dosage: 10 MG/M2, DAYS 43 TO 47, AND 57
     Route: 048
     Dates: start: 20210330, end: 20210330
  30. METHOTREXATE. [Concomitant]
     Active Substance: METHOTREXATE
     Indication: PROPHYLAXIS
     Dosage: UNK
     Route: 065
     Dates: start: 20210326, end: 20210326

REACTIONS (3)
  - Hypotension [Recovered/Resolved]
  - Febrile neutropenia [Recovered/Resolved]
  - Infusion related reaction [Recovered/Resolved]

NARRATIVE: CASE EVENT DATE: 20210312
